FAERS Safety Report 8940682 (Version 2)
Quarter: 2012Q4

REPORT INFORMATION
  Report Type: 
  Country: BR (occurrence: BR)
  Receive Date: 20121203
  Receipt Date: 20121204
  Transmission Date: 20130627
  Serious: Yes (Hospitalization, Other)
  Sender: FDA-Public Use
  Company Number: BR-ROCHE-1162840

PATIENT
  Age: 27 Year
  Sex: Male
  Weight: 84 kg

DRUGS (3)
  1. ROACUTAN [Suspect]
     Indication: PRODUCT USED FOR UNKNOWN INDICATION
     Route: 065
  2. ROACUTAN [Suspect]
     Route: 065
  3. ROACUTAN [Suspect]
     Route: 065

REACTIONS (7)
  - Haematuria [Unknown]
  - Nephritis [Unknown]
  - Renal pain [Unknown]
  - Renal haematoma [Unknown]
  - Weight decreased [Unknown]
  - Mucosal dryness [Unknown]
  - Dry skin [Unknown]
